FAERS Safety Report 5488983-2 (Version None)
Quarter: 2007Q4

REPORT INFORMATION
  Report Type: 
  Country: None (occurrence: None)
  Receive Date: 20071015
  Receipt Date: 20070626
  Transmission Date: 20080405
  Serious: No
  Sender: FDA-Public Use
  Company Number: 2007SP002362

PATIENT
  Age: 62 Year
  Sex: Female
  Weight: 39.4629 kg

DRUGS (5)
  1. LUNESTA [Suspect]
     Indication: INSOMNIA
     Dosage: 3 MG; ORAL;
     Route: 048
     Dates: start: 20061101, end: 20070618
  2. LUNESTA [Suspect]
     Indication: INSOMNIA
     Dosage: 3 MG; ORAL;
     Route: 048
     Dates: start: 20070623
  3. ACTONEL [Concomitant]
  4. TIMOLOL MALEATE [Concomitant]
  5. VYTORIN [Concomitant]

REACTIONS (1)
  - DRUG EFFECT DECREASED [None]
